FAERS Safety Report 7460965-0 (Version None)
Quarter: 2011Q2

REPORT INFORMATION
  Report Type: 
  Country: None (occurrence: None)
  Receive Date: 20110505
  Receipt Date: 20110503
  Transmission Date: 20111010
  Serious: Yes (Other)
  Sender: FDA-Public Use
  Company Number: US-AMGEN-USASP2010006612

PATIENT
  Age: 33 Year
  Sex: Female

DRUGS (5)
  1. IVIGLOB-EX [Suspect]
  2. RITUXIMAB [Concomitant]
  3. NPLATE [Suspect]
     Dates: start: 20101116
  4. NPLATE [Suspect]
     Indication: IDIOPATHIC THROMBOCYTOPENIC PURPURA
     Dosage: 200 MG, UNK
     Dates: start: 20101116, end: 20110101
  5. NPLATE [Suspect]
     Dosage: 250 MG, UNK
     Dates: end: 20101123

REACTIONS (3)
  - NO THERAPEUTIC RESPONSE [None]
  - CONDITION AGGRAVATED [None]
  - DRUG INEFFECTIVE [None]
